FAERS Safety Report 17417960 (Version 1)
Quarter: 2020Q1

REPORT INFORMATION
  Report Type: Spontaneous
  Country: US (occurrence: US)
  Receive Date: 20200130
  Receipt Date: 20200130
  Transmission Date: 20200409
  Serious: No
  Sender: FDA-Public Use
  Company Number: None

PATIENT
  Age: 78 Year
  Sex: Female

DRUGS (8)
  1. ALBUTEROL. [Concomitant]
     Active Substance: ALBUTEROL
  2. MONTELUKAST [Concomitant]
     Active Substance: MONTELUKAST SODIUM
  3. CEFDINIR. [Concomitant]
     Active Substance: CEFDINIR
  4. PROPRANOLOL [Concomitant]
     Active Substance: PROPRANOLOL HYDROCHLORIDE
  5. MELOXICAM. [Concomitant]
     Active Substance: MELOXICAM
  6. METHYLPRED [Concomitant]
     Active Substance: METHYLPREDNISOLONE
  7. PREDNISONE. [Concomitant]
     Active Substance: PREDNISONE
  8. TOBRAMYCIN 300MG/5ML 20ML NEB [Suspect]
     Active Substance: TOBRAMYCIN
     Indication: PNEUMONIA PSEUDOMONAL
     Route: 055
     Dates: start: 20190926

REACTIONS (2)
  - Pneumonia [None]
  - Viral infection [None]

NARRATIVE: CASE EVENT DATE: 20200130
